FAERS Safety Report 15300614 (Version 1)
Quarter: 2018Q3

REPORT INFORMATION
  Report Type: Spontaneous
  Country: US (occurrence: US)
  Receive Date: 20180808
  Receipt Date: 20180808
  Transmission Date: 20181010
  Serious: Yes (Hospitalization, Disabling, Other)
  Sender: FDA-Public Use
  Company Number: None

PATIENT
  Age: 80 Year
  Sex: Female
  Weight: 113.4 kg

DRUGS (5)
  1. VALSARTAN 80MG [Suspect]
     Active Substance: VALSARTAN
     Indication: HYPERTENSION
     Route: 048
     Dates: start: 20180227, end: 20180724
  2. XANAX [Concomitant]
     Active Substance: ALPRAZOLAM
  3. BABY ASA [Concomitant]
     Active Substance: ASPIRIN
  4. METOPROLOL SUCC ER [Concomitant]
     Active Substance: METOPROLOL SUCCINATE
  5. SYNTHROID [Concomitant]
     Active Substance: LEVOTHYROXINE SODIUM

REACTIONS (2)
  - General physical health deterioration [None]
  - Product substitution issue [None]

NARRATIVE: CASE EVENT DATE: 201802
